FAERS Safety Report 23883956 (Version 2)
Quarter: 2024Q2

REPORT INFORMATION
  Report Type: Spontaneous
  Country: US (occurrence: US)
  Receive Date: 20240522
  Receipt Date: 20240529
  Transmission Date: 20240715
  Serious: No
  Sender: FDA-Public Use
  Company Number: US-TEVA-VS-3196191

PATIENT

DRUGS (2)
  1. METHOTREXATE [Suspect]
     Active Substance: METHOTREXATE
     Indication: Rheumatoid arthritis
     Dosage: 7 PILLS A WEEK
     Route: 065
  2. METHOTREXATE [Suspect]
     Active Substance: METHOTREXATE
     Indication: Rheumatoid arthritis
     Dosage: WENT UP TO 9 PILLS A WEEK
     Route: 065

REACTIONS (8)
  - Malaise [Unknown]
  - Erythema [Unknown]
  - Rash erythematous [Unknown]
  - Burning sensation [Unknown]
  - Paraesthesia [Unknown]
  - Scar [Unknown]
  - Joint swelling [Unknown]
  - Incorrect dose administered [Unknown]

NARRATIVE: CASE EVENT DATE: 20240101
